FAERS Safety Report 20573599 (Version 1)
Quarter: 2022Q1

REPORT INFORMATION
  Report Type: Spontaneous
  Country: US (occurrence: US)
  Receive Date: 20220309
  Receipt Date: 20220309
  Transmission Date: 20220424
  Serious: No
  Sender: FDA-Public Use
  Company Number: US-ORGANON-O2202USA002163

PATIENT
  Age: 70 Year
  Sex: Female

DRUGS (1)
  1. ZOCOR [Suspect]
     Active Substance: SIMVASTATIN
     Dosage: 80 MILLIGRAM DAILY
     Route: 048

REACTIONS (1)
  - Contraindicated product administered [Unknown]
